FAERS Safety Report 8116244-1 (Version None)
Quarter: 2012Q1

REPORT INFORMATION
  Report Type: 
  Country: None (occurrence: None)
  Receive Date: 20120206
  Receipt Date: 20120130
  Transmission Date: 20120608
  Serious: Yes (Hospitalization)
  Sender: FDA-Public Use
  Company Number: US-ABBOTT-11P-163-0875381-00

PATIENT
  Sex: Male
  Weight: 68.1 kg

DRUGS (4)
  1. ASACOL [Concomitant]
     Indication: CROHN'S DISEASE
  2. ZANTAC [Concomitant]
     Indication: CROHN'S DISEASE
  3. HUMIRA [Suspect]
     Indication: CROHN'S DISEASE
     Dates: end: 20111026
  4. PRILOSEC [Concomitant]
     Indication: CROHN'S DISEASE

REACTIONS (10)
  - GASTROINTESTINAL SOUNDS ABNORMAL [None]
  - OESOPHAGEAL SPASM [None]
  - ILEUS [None]
  - MOBILITY DECREASED [None]
  - GASTRITIS [None]
  - NEUROPATHY PERIPHERAL [None]
  - CROHN'S DISEASE [None]
  - GLAUCOMA [None]
  - HYPOAESTHESIA [None]
  - PARAESTHESIA [None]
